FAERS Safety Report 25704445 (Version 1)
Quarter: 2025Q3

REPORT INFORMATION
  Report Type: Spontaneous
  Country: US (occurrence: US)
  Receive Date: 20250820
  Receipt Date: 20250820
  Transmission Date: 20251021
  Serious: Yes (Other)
  Sender: SANDOZ
  Company Number: US-002147023-NVSC2023US043833

PATIENT
  Sex: Male

DRUGS (6)
  1. AMOXICILLIN [Suspect]
     Active Substance: AMOXICILLIN
     Indication: Upper respiratory tract infection
     Route: 065
  2. CARVEDILOL [Suspect]
     Active Substance: CARVEDILOL
     Indication: Product used for unknown indication
     Route: 065
  3. COREG [Suspect]
     Active Substance: CARVEDILOL
     Indication: Product used for unknown indication
     Route: 065
  4. ENTRESTO [Suspect]
     Active Substance: SACUBITRIL\VALSARTAN
     Indication: Product used for unknown indication
     Dosage: 1 DOSAGE FORM, BID
     Route: 048
     Dates: start: 202302
  5. GLIPIZIDE [Suspect]
     Active Substance: GLIPIZIDE
     Indication: Product used for unknown indication
     Route: 065
  6. JARDIANCE [Suspect]
     Active Substance: EMPAGLIFLOZIN
     Indication: Product used for unknown indication
     Route: 065

REACTIONS (14)
  - Postoperative wound infection [Unknown]
  - Skin laceration [Unknown]
  - Skin weeping [Unknown]
  - Swelling [Recovering/Resolving]
  - Pollakiuria [Unknown]
  - Dry skin [Unknown]
  - Nocturia [Recovering/Resolving]
  - Dehydration [Recovered/Resolved]
  - Cough [Recovering/Resolving]
  - Hypotension [Unknown]
  - Paraesthesia [Unknown]
  - Blood glucose decreased [Recovering/Resolving]
  - Fatigue [Unknown]
  - Upper respiratory tract infection [Recovering/Resolving]
